FAERS Safety Report 14474041 (Version 1)
Quarter: 2018Q1

REPORT INFORMATION
  Report Type: Report from Study
  Country: US (occurrence: US)
  Receive Date: 20180201
  Receipt Date: 20180201
  Transmission Date: 20180509
  Serious: Yes (Other)
  Sender: FDA-Public Use
  Company Number: US-ROCHE-1560890

PATIENT
  Sex: Male

DRUGS (9)
  1. AMIODARONE [Concomitant]
     Active Substance: AMIODARONE
  2. LUCENTIS [Suspect]
     Active Substance: RANIBIZUMAB
     Indication: CHOROIDAL NEOVASCULARISATION
  3. TOBREX [Concomitant]
     Active Substance: TOBRAMYCIN
  4. LUCENTIS [Suspect]
     Active Substance: RANIBIZUMAB
     Indication: NEOVASCULAR AGE-RELATED MACULAR DEGENERATION
     Dosage: BOTH EYES
     Route: 050
     Dates: start: 20100402
  5. LIPITOR [Concomitant]
     Active Substance: ATORVASTATIN CALCIUM
  6. FLOMAX [Concomitant]
     Active Substance: TAMSULOSIN HYDROCHLORIDE
  7. TETRACAINE. [Concomitant]
     Active Substance: TETRACAINE
     Dosage: PRE INJECTION EYE DROPS
     Route: 065
  8. BETADINE [Concomitant]
     Active Substance: POVIDONE-IODINE
     Dosage: 5 %
     Route: 065
  9. BABY ASPIRIN [Concomitant]
     Active Substance: ASPIRIN

REACTIONS (5)
  - Deafness [Unknown]
  - Iris adhesions [Unknown]
  - Uveitis [Unknown]
  - Pupillary disorder [Unknown]
  - Vitreous detachment [Unknown]
